FAERS Safety Report 5494614-8 (Version None)
Quarter: 2007Q4

REPORT INFORMATION
  Report Type: 
  Country: None (occurrence: None)
  Receive Date: 20071015
  Receipt Date: 20070705
  Transmission Date: 20080405
  Serious: No
  Sender: FDA-Public Use
  Company Number: 2007SP001605

PATIENT
  Age: 65 Year
  Sex: Male
  Weight: 68.0396 kg

DRUGS (8)
  1. LUNESTA [Suspect]
     Indication: MIDDLE INSOMNIA
     Dosage: 1 MG; HS; ORAL; 1 MG; 1X; ORAL; 2 MG; HS; ORAL
     Route: 048
     Dates: start: 20070427, end: 20070101
  2. LUNESTA [Suspect]
     Indication: MIDDLE INSOMNIA
     Dosage: 1 MG; HS; ORAL; 1 MG; 1X; ORAL; 2 MG; HS; ORAL
     Route: 048
     Dates: start: 20070703, end: 20070703
  3. LUNESTA [Suspect]
     Indication: MIDDLE INSOMNIA
     Dosage: 1 MG; HS; ORAL; 1 MG; 1X; ORAL; 2 MG; HS; ORAL
     Route: 048
     Dates: start: 20070704
  4. OXCARBAZEPINE [Concomitant]
  5. RISPERDAL [Concomitant]
  6. CARAFATE [Concomitant]
  7. METOCLOPRAMIDE [Concomitant]
  8. KLONOPIN [Concomitant]

REACTIONS (1)
  - MIDDLE INSOMNIA [None]
